FAERS Safety Report 18929268 (Version 5)
Quarter: 2022Q1

REPORT INFORMATION
  Report Type: Report from Study
  Country: CO (occurrence: CO)
  Receive Date: 20210223
  Receipt Date: 20220207
  Transmission Date: 20220423
  Serious: Yes (Other)
  Sender: FDA-Public Use
  Company Number: CO-TAKEDA-2021TUS010490

PATIENT
  Age: 8 Year
  Sex: Male
  Weight: 22 kg

DRUGS (2)
  1. HUMAN IMMUNOGLOBULIN G\HYALURONIDASE RECOMBINANT HUMAN [Suspect]
     Active Substance: HUMAN IMMUNOGLOBULIN G\HYALURONIDASE RECOMBINANT HUMAN
     Indication: Bruton^s agammaglobulinaemia
     Dosage: 10 GRAM
     Route: 058
  2. HUMAN IMMUNOGLOBULIN G\HYALURONIDASE RECOMBINANT HUMAN [Suspect]
     Active Substance: HUMAN IMMUNOGLOBULIN G\HYALURONIDASE RECOMBINANT HUMAN
     Indication: Primary immunodeficiency syndrome
     Dosage: 20 GRAM, MONTHLY
     Route: 058

REACTIONS (14)
  - Otitis media chronic [Unknown]
  - Pneumonia [Unknown]
  - Administration site pruritus [Recovered/Resolved]
  - Crying [Recovered/Resolved]
  - Pain [Unknown]
  - Dermatitis atopic [Unknown]
  - Malnutrition [Unknown]
  - Abnormal behaviour [Recovered/Resolved]
  - Irritability [Recovered/Resolved]
  - Infusion site pain [Recovering/Resolving]
  - Gait inability [Recovering/Resolving]
  - Body height increased [Unknown]
  - Weight increased [Unknown]
  - Product prescribing issue [Unknown]

NARRATIVE: CASE EVENT DATE: 20210319
